FAERS Safety Report 14546068 (Version 4)
Quarter: 2020Q1

REPORT INFORMATION
  Report Type: Report from Study
  Country: DE (occurrence: DE)
  Receive Date: 20180219
  Receipt Date: 20200219
  Transmission Date: 20200409
  Serious: Yes (Hospitalization, Other)
  Sender: FDA-Public Use
  Company Number: DE-INCYTE CORPORATION-2018IN000651

PATIENT

DRUGS (16)
  1. L-THYROXINE [LEVOTHYROXINE SODIUM] [Concomitant]
     Active Substance: LEVOTHYROXINE SODIUM
     Indication: HYPOTHYROIDISM
     Dosage: 100 MG, QD
     Route: 048
     Dates: start: 19900101
  2. PANTOPRAZOLE [Concomitant]
     Active Substance: PANTOPRAZOLE
     Indication: GASTRITIS
     Dosage: 40 MG, QD
     Route: 048
     Dates: start: 20150303
  3. IBUFLAM [IBUPROFEN] [Concomitant]
     Active Substance: IBUPROFEN
     Indication: PAIN
     Dosage: 600 MG, QD
     Route: 048
     Dates: start: 20150303
  4. JAKAVI [Suspect]
     Active Substance: RUXOLITINIB
     Indication: POLYCYTHAEMIA VERA
     Dosage: 10 MG, BID
     Route: 048
     Dates: start: 20151218, end: 20181128
  5. VERAPAMIL [Concomitant]
     Active Substance: VERAPAMIL HYDROCHLORIDE
     Indication: HYPERTENSION
     Dosage: 120 MG, BID (0.5 2X DAY)
     Route: 048
     Dates: start: 19900101
  6. SPIRONOLACTONE. [Concomitant]
     Active Substance: SPIRONOLACTONE
     Indication: HYPERTENSION
     Dosage: 50 MG, QD
     Route: 048
     Dates: start: 20180913, end: 20181029
  7. ASPIRIN. [Concomitant]
     Active Substance: ASPIRIN
     Indication: POLYCYTHAEMIA VERA
     Dosage: 100 MG, QD 3XWEEK
     Route: 048
     Dates: start: 19900101
  8. SPIRONOLACTONE. [Concomitant]
     Active Substance: SPIRONOLACTONE
     Indication: BLADDER TRANSITIONAL CELL CARCINOMA
     Dosage: 50 MG, QD
     Route: 048
     Dates: start: 19900101
  9. FLUTICASONE. [Concomitant]
     Active Substance: FLUTICASONE
     Indication: ASTHMA
     Dosage: 100 MG, QW3
     Route: 048
     Dates: start: 19000101
  10. ZOPICLONE [Concomitant]
     Active Substance: ZOPICLONE
     Indication: SLEEP DISORDER
     Dosage: 7.5 MG, PRN
     Route: 048
     Dates: start: 20120111
  11. RESONIUM A [Concomitant]
     Active Substance: SODIUM POLYSTYRENE SULFONATE
     Indication: HYPERURICAEMIA
     Dosage: UNK (MONDAY/ WEDNESDAY/ FRIDAY), POWDER
     Route: 048
     Dates: start: 20171221
  12. JAKAVI [Suspect]
     Active Substance: RUXOLITINIB
     Dosage: 15 MG, BID
     Route: 048
     Dates: start: 20181129
  13. ALLOPURINOL. [Concomitant]
     Active Substance: ALLOPURINOL
     Indication: HYPERURICAEMIA
     Dosage: 150 MG, QD
     Route: 048
     Dates: start: 19900101, end: 20160621
  14. MIRTAZAPINE. [Concomitant]
     Active Substance: MIRTAZAPINE
     Indication: DEPRESSION
     Dosage: 15 MG, QD
     Route: 048
     Dates: start: 20160413
  15. VIANI [Concomitant]
     Active Substance: FLUTICASONE PROPIONATE\SALMETEROL XINAFOATE
     Indication: ASTHMA
     Dosage: UNK UNK, PRN
     Route: 048
  16. KETOTIFEN [Concomitant]
     Active Substance: KETOTIFEN
     Indication: ASTHMA
     Dosage: 1 MG, QD
     Route: 048
     Dates: start: 19900101

REACTIONS (7)
  - Hypertension [Recovered/Resolved]
  - Transient ischaemic attack [Recovered/Resolved]
  - Disorientation [Recovered/Resolved]
  - Arthralgia [Not Recovered/Not Resolved]
  - Epistaxis [Recovered/Resolved]
  - Concomitant disease aggravated [Recovered/Resolved]
  - Liver disorder [Not Recovered/Not Resolved]

NARRATIVE: CASE EVENT DATE: 20170805
